FAERS Safety Report 4846954-0 (Version None)
Quarter: 2005Q4

REPORT INFORMATION
  Report Type: 
  Country: None (occurrence: None)
  Receive Date: 20051207
  Receipt Date: 20051124
  Transmission Date: 20060501
  Serious: Yes (Other)
  Sender: FDA-Public Use
  Company Number: SE-AVENTIS-200520599GDDC

PATIENT
  Age: 41 Year
  Sex: Male

DRUGS (5)
  1. FLAGYL [Suspect]
     Indication: OSTEITIS
     Route: 048
     Dates: start: 20040904, end: 20040911
  2. TIPAROL [Suspect]
     Indication: OSTEITIS
     Route: 048
     Dates: start: 20040828, end: 20040901
  3. ALVEDON [Concomitant]
  4. IPREN [Concomitant]
  5. CELEBRA [Concomitant]

REACTIONS (1)
  - CONVULSION [None]
